FAERS Safety Report 10141726 (Version 2)
Quarter: 2014Q2

REPORT INFORMATION
  Report Type: Spontaneous
  Country: US (occurrence: US)
  Receive Date: 20140429
  Receipt Date: 20140429
  Transmission Date: 20141212
  Serious: No
  Sender: FDA-Public Use
  Company Number: US-MYLANLABS-2014S1001472

PATIENT
  Age: 71 Year
  Sex: Female
  Weight: 81.65 kg

DRUGS (13)
  1. LORAZEPAM TABLETS, USP [Suspect]
     Indication: INSOMNIA
     Dosage: CAN TAKE 1MG TO 5MG AS NEEDED AT BEDTIME?TID PRN
     Route: 048
     Dates: start: 20140110, end: 20140118
  2. LORAZEPAM TABLETS, USP [Suspect]
     Indication: ANXIETY
     Dosage: CAN TAKE 1MG TO 5MG AS NEEDED AT BEDTIME?TID PRN
     Route: 048
     Dates: start: 20140110, end: 20140118
  3. LORAZEPAM TABLETS, USP [Suspect]
     Indication: OFF LABEL USE
     Dosage: CAN TAKE 1MG TO 5MG AS NEEDED AT BEDTIME?TID PRN
     Route: 048
     Dates: start: 20140110, end: 20140118
  4. OXYCODONE [Concomitant]
     Indication: BREAKTHROUGH PAIN
     Dosage: ONE TABLET EVERY 4 HOURS AS NEEDED FOR BREAKTHROUGH PAIN
     Route: 048
  5. AVAPRO [Concomitant]
     Route: 048
  6. CLOBETASOL PROPIONATE [Concomitant]
     Dosage: 0.05% APPLY TO AFFECTED AREA AS DIRECTED
     Route: 061
  7. ESCITALOPRAM [Concomitant]
     Route: 048
  8. ESTRATEST [Concomitant]
     Dosage: EST ESTROGENS-METHYLTEST HS 0.625-1.25MG
     Route: 048
  9. HYDROCHLOROTHIAZIDE [Concomitant]
     Route: 048
  10. HYDROCORTISONE [Concomitant]
     Dosage: INSERT 1 SUPPOSITORY RECTALLY EVERY 4 TO 6 HOURS AS NEEDED
     Route: 054
  11. LEVOTHYROXINE [Concomitant]
     Route: 048
  12. METOPROLOL SUCCINATE [Concomitant]
  13. TRAZODONE [Concomitant]
     Route: 048

REACTIONS (3)
  - Drug ineffective for unapproved indication [Recovered/Resolved]
  - Insomnia [Recovered/Resolved]
  - False negative investigation result [Recovered/Resolved]
